FAERS Safety Report 4814613-6 (Version None)
Quarter: 2005Q4

REPORT INFORMATION
  Report Type: 
  Country: None (occurrence: None)
  Receive Date: 20051028
  Receipt Date: 20041210
  Transmission Date: 20060501
  Serious: No
  Sender: FDA-Public Use
  Company Number: US-GLAXOSMITHKLINE-A0536866A

PATIENT
  Age: 67 Year
  Sex: Female

DRUGS (10)
  1. ADVAIR DISKUS 100/50 [Suspect]
     Indication: ASTHMA
     Dosage: 1PUFF TWICE PER DAY
     Route: 055
  2. PREVACID [Concomitant]
  3. TOPROL-XL [Concomitant]
  4. FUROSEMIDE [Concomitant]
  5. FLUOXETINE [Concomitant]
  6. ASPIRIN [Concomitant]
  7. FOLATE [Concomitant]
  8. SINGULAIR [Concomitant]
  9. POTASSIUM [Concomitant]
  10. ALBUTEROL [Concomitant]

REACTIONS (5)
  - CHEST DISCOMFORT [None]
  - CHEST PAIN [None]
  - COUGH [None]
  - ILL-DEFINED DISORDER [None]
  - PHARMACEUTICAL PRODUCT COMPLAINT [None]
